FAERS Safety Report 9379350 (Version 2)
Quarter: 2013Q3

REPORT INFORMATION
  Report Type: Spontaneous
  Country: US (occurrence: US)
  Receive Date: 20130702
  Receipt Date: 20130715
  Transmission Date: 20140515
  Serious: Yes (Other)
  Sender: FDA-Public Use
  Company Number: US-AMGEN-USASP2013045872

PATIENT
  Age: 68 Year
  Sex: Female

DRUGS (6)
  1. PROLIA [Suspect]
     Indication: OSTEOPOROSIS
     Dosage: 60 MG, Q6MO
     Dates: start: 2011
  2. PROLIA [Suspect]
     Indication: OSTEOPENIA
  3. SYNTHROID [Concomitant]
  4. PEPCID                             /00706001/ [Concomitant]
  5. CALCIUM WITH VITAMIN D             /00944201/ [Concomitant]
  6. VITAMIN D                          /00107901/ [Concomitant]

REACTIONS (2)
  - Arthropathy [Unknown]
  - Dermatitis contact [Recovering/Resolving]
